FAERS Safety Report 4794522-1 (Version None)
Quarter: 2005Q4

REPORT INFORMATION
  Report Type: 
  Country: None (occurrence: None)
  Receive Date: 20051011
  Receipt Date: 20050812
  Transmission Date: 20060501
  Serious: Yes (Hospitalization)
  Sender: FDA-Public Use
  Company Number: SK-BRISTOL-MYERS SQUIBB COMPANY-13074158

PATIENT
  Age: 36 Year
  Sex: Male

DRUGS (2)
  1. ARIPIPRAZOLE [Suspect]
     Indication: SCHIZOPHRENIA
     Dosage: DOSAGE: INCREASED TO 30 MG DAILY ON 12-AUG-2005, THEN DISCONTINUED ON 08-SEP-2005
     Route: 048
     Dates: start: 20050804, end: 20050908
  2. AMISULPRIDUM [Concomitant]
     Dates: start: 20040130, end: 20050817

REACTIONS (1)
  - SCHIZOPHRENIA [None]
